FAERS Safety Report 6973268-5 (Version None)
Quarter: 2010Q3

REPORT INFORMATION
  Report Type: 
  Country: None (occurrence: None)
  Receive Date: 20100909
  Receipt Date: 20100826
  Transmission Date: 20110219
  Serious: Yes (Other)
  Sender: FDA-Public Use
  Company Number: PHHY2010RU57213

PATIENT
  Age: 58 Year
  Sex: Female

DRUGS (4)
  1. MIACALCIN [Suspect]
     Indication: OSTEOARTHRITIS
     Dosage: 100 ME
     Route: 030
  2. METOPROLOL TARTRATE [Concomitant]
     Dosage: UNK
     Dates: start: 20100813
  3. DICLOFENAC [Concomitant]
     Dosage: UNK
     Route: 042
     Dates: start: 20100814, end: 20100820
  4. OMEPRAZOLE [Concomitant]
     Dosage: UNK
     Dates: start: 20100814, end: 20100820

REACTIONS (1)
  - PRURITUS [None]
